FAERS Safety Report 4443885-5 (Version None)
Quarter: 2004Q3

REPORT INFORMATION
  Report Type: 
  Country: None (occurrence: None)
  Receive Date: 20040729
  Receipt Date: 20040423
  Transmission Date: 20050211
  Serious: Yes (Other)
  Sender: FDA-Public Use
  Company Number: US-JNJFOC-20040405811

PATIENT
  Sex: 0

DRUGS (1)
  1. RISPERDAL [Suspect]
     Dosage: 1 MG, 1 IN 1 DAY, ORAL
     Route: 048

REACTIONS (1)
  - DIABETES MELLITUS [None]
